FAERS Safety Report 8380469-0 (Version None)
Quarter: 2012Q2

REPORT INFORMATION
  Report Type: 
  Country: None (occurrence: None)
  Receive Date: 20120523
  Receipt Date: 20110801
  Transmission Date: 20120825
  Serious: Yes (Hospitalization)
  Sender: FDA-Public Use
  Company Number: JP-GLAXOSMITHKLINE-B0737551A

PATIENT
  Sex: Female
  Weight: 43.8 kg

DRUGS (4)
  1. HYCAMTIN [Suspect]
     Indication: OVARIAN CANCER RECURRENT
     Dosage: 2.01MG PER DAY
     Route: 042
     Dates: start: 20110719, end: 20110723
  2. BLOOD TRANSFUSION [Concomitant]
     Dates: start: 20110730, end: 20111018
  3. DEXAMETHASONE SODIUM POSPHATE [Concomitant]
     Indication: PROPHYLAXIS OF NAUSEA AND VOMITING
     Dosage: 6.6MG PER DAY
     Route: 042
     Dates: start: 20110719, end: 20110723
  4. FAMOTIDINE [Concomitant]
     Indication: ABDOMINAL PAIN UPPER
     Dosage: 40MG PER DAY
     Route: 042
     Dates: start: 20110719

REACTIONS (2)
  - THROMBOCYTOPENIA [None]
  - AGRANULOCYTOSIS [None]
